FAERS Safety Report 7756126-8 (Version None)
Quarter: 2011Q3

REPORT INFORMATION
  Report Type: 
  Country: None (occurrence: None)
  Receive Date: 20110914
  Receipt Date: 20110901
  Transmission Date: 20111222
  Serious: Yes (Other)
  Sender: FDA-Public Use
  Company Number: 2011MA001521

PATIENT
  Age: 55 Year
  Sex: Female
  Weight: 74.3899 kg

DRUGS (28)
  1. METOCLOPRAMIDE [Suspect]
     Indication: IMPAIRED GASTRIC EMPTYING
     Dosage: PO
     Route: 048
     Dates: start: 19980201, end: 20050301
  2. CEPHALEXIN [Concomitant]
  3. VIOXX [Concomitant]
  4. PROPOXYPHENE NAPSYLATE [Concomitant]
  5. CHERATUSSIN AC SYRUP [Concomitant]
  6. CYCLOPHOSPHAMIDE [Concomitant]
  7. DIFLUCAN [Concomitant]
  8. SINEMET CR [Concomitant]
  9. ZOCOR [Concomitant]
  10. OXYCODONE HCL AND ACETAMINOPHEN [Concomitant]
  11. DIOVAN [Concomitant]
  12. FLONASE [Concomitant]
  13. METRONIDAZOLE [Concomitant]
  14. ZITHROMAX [Concomitant]
  15. ACIPHEX [Concomitant]
  16. PRAVACHOL [Concomitant]
  17. CEFTIN [Concomitant]
  18. SKELAXIN [Concomitant]
  19. FLUOXETINE [Concomitant]
  20. METHYLPREDNISOLONE [Concomitant]
  21. PROPULSID [Concomitant]
  22. PROZAC [Concomitant]
  23. PRILOSEC [Concomitant]
  24. AUGMENTIN '125' [Concomitant]
  25. GLARITIN [Concomitant]
  26. LORAZEPAM [Concomitant]
  27. NEURONTIN [Concomitant]
  28. CRESTOR [Concomitant]

REACTIONS (10)
  - STRABISMUS [None]
  - HYPOAESTHESIA [None]
  - TARDIVE DYSKINESIA [None]
  - IMPAIRED HEALING [None]
  - DYSKINESIA [None]
  - PARAESTHESIA [None]
  - MUSCLE CONTRACTIONS INVOLUNTARY [None]
  - PROTRUSION TONGUE [None]
  - EMOTIONAL DISORDER [None]
  - TREMOR [None]
